FAERS Safety Report 5625469-6 (Version None)
Quarter: 2008Q1

REPORT INFORMATION
  Report Type: 
  Country: None (occurrence: None)
  Receive Date: 20080208
  Receipt Date: 20080128
  Transmission Date: 20080703
  Serious: Yes (Other)
  Sender: FDA-Public Use
  Company Number: 2008002446

PATIENT
  Age: 85 Year
  Sex: Female
  Weight: 64.8644 kg

DRUGS (5)
  1. POLYSPORIN OINTMENT [Suspect]
     Indication: ANIMAL BITE
     Dosage: ENOUGH TO COVER BITE MARK 3 TIMES DAILY, TOPICAL
     Route: 061
     Dates: start: 20071215, end: 20080125
  2. NORVASC [Concomitant]
  3. PRINIVIL [Concomitant]
  4. TRANDATE [Concomitant]
  5. CITRACAL (CALCIUM CITRATE) [Concomitant]

REACTIONS (2)
  - BLOOD TEST ABNORMAL [None]
  - HYPOAESTHESIA [None]
